FAERS Safety Report 9298228 (Version 1)
Quarter: 2013Q1

REPORT INFORMATION
  Report Type: Spontaneous
  Country: US (occurrence: None)
  Receive Date: 20121227
  Receipt Date: 20121227
  Transmission Date: 20140127
  Serious: No
  Sender: FDA-Public Use
  Company Number: PHEH2012US013189

PATIENT
  Age: 25 Year
  Sex: Female

DRUGS (8)
  1. AFINITOR [Suspect]
     Indication: TUBEROUS SCLEROSIS
     Route: 048
     Dates: start: 20120627, end: 20120703
  2. VITAMIN A (RETINOL) [Concomitant]
  3. VITAMINS (ASCORBIC ACID, ERGOCALCIFEROL, NICOTINAMIDE, RETINOL, RIBOFLAVIN, THIAMINE HYDROCHLORIDE) [Concomitant]
  4. PROBIOTICS (NO INGREDIENTS/SUBSTANCES) [Concomitant]
  5. BETACAROTENE (BETACAROTENE) [Concomitant]
  6. HERBAL PREPARATION (NO INGREDIENTS/SUBSTANCES) [Concomitant]
  7. HOMEOPATHIC PREPARATIONS (NO INGREDIENTS/SUBSTANCES) [Concomitant]
  8. MARIJUANA (CANNABIS, CANNABIS SATIVA) [Concomitant]

REACTIONS (9)
  - Dizziness [None]
  - Oropharyngeal pain [None]
  - Oral pain [None]
  - Fatigue [None]
  - Decreased appetite [None]
  - Stomatitis [None]
  - Weight decreased [None]
  - Menstruation irregular [None]
  - Headache [None]
